FAERS Safety Report 18931291 (Version 1)
Quarter: 2021Q1

REPORT INFORMATION
  Report Type: Report from Study
  Country: US (occurrence: US)
  Receive Date: 20210223
  Receipt Date: 20210223
  Transmission Date: 20210420
  Serious: Yes (Other)
  Sender: FDA-Public Use
  Company Number: US-JAZZ-2020-US-011309

PATIENT
  Age: 21 Year
  Sex: Male

DRUGS (22)
  1. XYREM [Suspect]
     Active Substance: SODIUM OXYBATE
     Dosage: 3.5 GRAM, BID
     Route: 048
     Dates: start: 201903, end: 201904
  2. XYREM [Suspect]
     Active Substance: SODIUM OXYBATE
     Dosage: 4.5 GRAM, FIRST DOSE
     Route: 048
     Dates: start: 202004, end: 2020
  3. XYREM [Suspect]
     Active Substance: SODIUM OXYBATE
     Dosage: 2.25 GRAM, QD
     Route: 048
     Dates: start: 2020
  4. ARMODAFINIL. [Concomitant]
     Active Substance: ARMODAFINIL
  5. XYREM [Suspect]
     Active Substance: SODIUM OXYBATE
     Indication: NARCOLEPSY
     Dosage: 2.25 GRAM, BID
     Route: 048
     Dates: start: 201708, end: 201708
  6. GLUCAGON. [Concomitant]
     Active Substance: GLUCAGON
  7. HUMALOG [Concomitant]
     Active Substance: INSULIN LISPRO
  8. TRIAMCINOLONE [Concomitant]
     Active Substance: TRIAMCINOLONE
  9. XYREM [Suspect]
     Active Substance: SODIUM OXYBATE
     Indication: CATAPLEXY
     Dosage: DOSE ADJUSTEMNT
     Route: 048
     Dates: start: 201708, end: 201709
  10. RITALIN [Concomitant]
     Active Substance: METHYLPHENIDATE HYDROCHLORIDE
  11. OMEPRAZOLE. [Concomitant]
     Active Substance: OMEPRAZOLE
  12. SERTRALINE HCL [Concomitant]
     Active Substance: SERTRALINE HYDROCHLORIDE
  13. CITALOPRAM [Concomitant]
     Active Substance: CITALOPRAM HYDROBROMIDE
  14. XYREM [Suspect]
     Active Substance: SODIUM OXYBATE
     Dosage: 3 GRAM, SECOND DOSE
     Route: 048
     Dates: start: 202004, end: 2020
  15. MODAFINIL. [Concomitant]
     Active Substance: MODAFINIL
  16. NUVIGIL [Concomitant]
     Active Substance: ARMODAFINIL
  17. CLONAZEPAM. [Concomitant]
     Active Substance: CLONAZEPAM
  18. ABILIFY [Concomitant]
     Active Substance: ARIPIPRAZOLE
  19. LANTUS [Concomitant]
     Active Substance: INSULIN GLARGINE
  20. LEVEMIR [Concomitant]
     Active Substance: INSULIN DETEMIR
  21. XYREM [Suspect]
     Active Substance: SODIUM OXYBATE
     Dosage: 4.5 GRAM, BID
     Route: 048
     Dates: start: 201709, end: 201810
  22. NOVOLOG [Concomitant]
     Active Substance: INSULIN ASPART

REACTIONS (9)
  - Thirst [Unknown]
  - Eye contusion [Not Recovered/Not Resolved]
  - Concussion [Unknown]
  - Loss of consciousness [Unknown]
  - Mood altered [Unknown]
  - Vertigo [Unknown]
  - Fall [Recovered/Resolved]
  - Head injury [Unknown]
  - Wrong technique in product usage process [Unknown]

NARRATIVE: CASE EVENT DATE: 20200827
